FAERS Safety Report 5551252-6 (Version None)
Quarter: 2007Q4

REPORT INFORMATION
  Report Type: 
  Country: None (occurrence: None)
  Receive Date: 20071128
  Receipt Date: 20061030
  Transmission Date: 20080405
  Serious: Yes (Other)
  Sender: FDA-Public Use
  Company Number: 2006132426

PATIENT
  Sex: Female

DRUGS (1)
  1. LIPITOR [Suspect]
     Indication: BLOOD CHOLESTEROL INCREASED
     Dosage: (40 MG)
     Dates: start: 20060711

REACTIONS (6)
  - BRONCHITIS [None]
  - DYSPNOEA [None]
  - MUSCLE SPASMS [None]
  - MUSCULAR WEAKNESS [None]
  - MYALGIA [None]
  - PNEUMONIA [None]
